FAERS Safety Report 4303650-6 (Version None)
Quarter: 2004Q1

REPORT INFORMATION
  Report Type: 
  Country: None (occurrence: None)
  Receive Date: 20040223
  Receipt Date: 20040210
  Transmission Date: 20041129
  Serious: Yes (Hospitalization)
  Sender: FDA-Public Use
  Company Number: 2004009541

PATIENT
  Age: 71 Year
  Sex: Male

DRUGS (7)
  1. LIPITOR [Suspect]
     Indication: ILL-DEFINED DISORDER
     Dosage: 10 MG (UNKNOWN), ORAL
     Route: 048
     Dates: start: 20031205, end: 20040130
  2. ENALAPRIL MALEATE [Concomitant]
  3. GLIMEPIRIDE [Concomitant]
  4. DILTIAZEM [Concomitant]
  5. CARVEDILOL [Concomitant]
  6. IFENPRODIL TARTRATE (IFENPRODIL TARTRATE) [Concomitant]
  7. ALLOPURINOL [Concomitant]

REACTIONS (3)
  - BLOOD CREATINE PHOSPHOKINASE INCREASED [None]
  - MYOCARDIAL INFARCTION [None]
  - MYOGLOBINURIA [None]
